FAERS Safety Report 8053539-4 (Version None)
Quarter: 2012Q1

REPORT INFORMATION
  Report Type: 
  Country: None (occurrence: None)
  Receive Date: 20120118
  Receipt Date: 20120106
  Transmission Date: 20120608
  Serious: Yes (Disabling)
  Sender: FDA-Public Use
  Company Number: FR-ALEXION PHARMACEUTICALS INC.-A201200043

PATIENT
  Sex: Female

DRUGS (5)
  1. AUGMENTIN '125' [Concomitant]
     Indication: EAR INFECTION
     Dosage: UNK
     Route: 048
     Dates: start: 20111223
  2. AUGMENTIN '125' [Concomitant]
     Indication: PHARYNGITIS
  3. SOLIRIS [Suspect]
     Indication: PAROXYSMAL NOCTURNAL HAEMOGLOBINURIA
     Route: 042
  4. SOLIRIS [Suspect]
     Dosage: UNK, Q2W
     Route: 042
  5. AUGMENTIN '125' [Concomitant]
     Indication: RHINITIS

REACTIONS (2)
  - HYPOACUSIS [None]
  - ISCHAEMIC STROKE [None]
